FAERS Safety Report 19978065 (Version 1)
Quarter: 2021Q4

REPORT INFORMATION
  Report Type: Spontaneous
  Country: US (occurrence: US)
  Receive Date: 20211021
  Receipt Date: 20211021
  Transmission Date: 20220304
  Serious: Yes (unspecified)
  Sender: FDA-Public Use
  Company Number: None

PATIENT
  Age: 55 Year
  Sex: Female
  Weight: 58.5 kg

DRUGS (5)
  1. VENOFER [Suspect]
     Active Substance: IRON SUCROSE
     Indication: Anaemia
     Dates: start: 20211004, end: 20211018
  2. VENOFER [Suspect]
     Active Substance: IRON SUCROSE
     Indication: Blood iron decreased
  3. VITAMIN D2 [Concomitant]
     Active Substance: ERGOCALCIFEROL
  4. IRON [Concomitant]
     Active Substance: IRON
  5. AMBIEM [Concomitant]

REACTIONS (14)
  - Pain [None]
  - Burning sensation [None]
  - Pain in extremity [None]
  - Headache [None]
  - Muscular weakness [None]
  - Pain in extremity [None]
  - Paraesthesia [None]
  - Paraesthesia [None]
  - Weight bearing difficulty [None]
  - Oropharyngeal pain [None]
  - Throat tightness [None]
  - Peripheral swelling [None]
  - Paraesthesia [None]
  - Hypersensitivity [None]

NARRATIVE: CASE EVENT DATE: 20211018
